FAERS Safety Report 5496400-1 (Version None)
Quarter: 2007Q4

REPORT INFORMATION
  Report Type: 
  Country: None (occurrence: None)
  Receive Date: 20071025
  Receipt Date: 20070404
  Transmission Date: 20080405
  Serious: No
  Sender: FDA-Public Use
  Company Number: A0645977A

PATIENT
  Age: 63 Year
  Sex: Male

DRUGS (5)
  1. ADVAIR DISKUS 100/50 [Suspect]
     Indication: ASTHMA
     Dosage: 250MCG TWICE PER DAY
     Route: 055
  2. LOTENSIN [Concomitant]
  3. CARDIZEM [Concomitant]
  4. NEXIUM [Concomitant]
  5. FLOMAX [Concomitant]

REACTIONS (1)
  - CANDIDIASIS [None]
